FAERS Safety Report 5079398-X (Version None)
Quarter: 2006Q3

REPORT INFORMATION
  Report Type: 
  Country: None (occurrence: None)
  Receive Date: 20060809
  Receipt Date: 20060727
  Transmission Date: 20061208
  Serious: Yes (Hospitalization, Other)
  Sender: FDA-Public Use
  Company Number: CLOF-10299

PATIENT
  Age: 60 Year
  Sex: Male

DRUGS (11)
  1. CLOFARABINE [Suspect]
     Indication: ACUTE LYMPHOCYTIC LEUKAEMIA
     Dosage: 58 MG QD X 3 IV
     Route: 042
     Dates: start: 20060707, end: 20060709
  2. CYCLOPHOSPHAMIDE [Suspect]
     Indication: ACUTE LYMPHOCYTIC LEUKAEMIA
     Dosage: 435 MG Q12HR IV
     Route: 042
     Dates: start: 20060706, end: 20060708
  3. BACTRIM [Concomitant]
  4. DIFLUCAN [Concomitant]
  5. MYCOSTATIN [Concomitant]
  6. VALCYTE [Concomitant]
  7. NEXIUM [Concomitant]
  8. MEGACE [Concomitant]
  9. K-DUR 10 [Concomitant]
  10. COMPAZINE [Concomitant]
  11. DARVON [Concomitant]

REACTIONS (4)
  - BACTERIAL SEPSIS [None]
  - HYPOTENSION [None]
  - KLEBSIELLA INFECTION [None]
  - NEUTROPENIA [None]
